FAERS Safety Report 18598905 (Version 4)
Quarter: 2021Q1

REPORT INFORMATION
  Report Type: Spontaneous
  Country: CZ (occurrence: CZ)
  Receive Date: 20201210
  Receipt Date: 20210306
  Transmission Date: 20210419
  Serious: Yes (Hospitalization, Other)
  Sender: FDA-Public Use
  Company Number: CZ-ACCORD-210178

PATIENT
  Age: 81 Year
  Sex: Female
  Weight: 68 kg

DRUGS (10)
  1. AMLODIPINE [Suspect]
     Active Substance: AMLODIPINE BESYLATE
     Indication: HYPERTENSION
     Dosage: 5 MG?DAILY
  2. ROSUVASTATIN. [Interacting]
     Active Substance: ROSUVASTATIN
     Indication: HYPERLIPIDAEMIA
     Route: 048
     Dates: end: 201609
  3. ANAPREX [Interacting]
     Active Substance: ANASTROZOLE
     Indication: BREAST CANCER
     Dosage: 1 MG?DAILY
     Route: 048
     Dates: start: 20160905, end: 20160908
  4. HYDROCHLOROTHIAZIDE. [Interacting]
     Active Substance: HYDROCHLOROTHIAZIDE
     Indication: CHRONIC KIDNEY DISEASE
  5. GLIQUIDONE [Interacting]
     Active Substance: GLIQUIDONE
     Indication: TYPE 2 DIABETES MELLITUS
  6. TELMISARTAN. [Interacting]
     Active Substance: TELMISARTAN
     Indication: HYPERTENSION
     Dosage: 40 MG DAILY
     Route: 048
  7. METFORMIN [Interacting]
     Active Substance: METFORMIN HYDROCHLORIDE
     Indication: TYPE 2 DIABETES MELLITUS
     Route: 048
     Dates: end: 201609
  8. RILMENIDINE/RILMENIDINE PHOSPHATE [Interacting]
     Active Substance: RILMENIDINE
     Indication: HYPERTENSION
  9. BETAXOLOL. [Interacting]
     Active Substance: BETAXOLOL
     Indication: PRODUCT USED FOR UNKNOWN INDICATION
  10. TAMOXIFEN [Interacting]
     Active Substance: TAMOXIFEN
     Indication: BREAST CANCER STAGE I
     Route: 048
     Dates: end: 20160904

REACTIONS (7)
  - Renal function test abnormal [Recovered/Resolved]
  - Hypersensitivity [Recovered/Resolved]
  - Renal failure [Recovered/Resolved]
  - Drug level increased [Recovered/Resolved]
  - Drug interaction [Unknown]
  - Drug-induced liver injury [Recovered/Resolved]
  - Jaundice [Recovered/Resolved]

NARRATIVE: CASE EVENT DATE: 20160906
